FAERS Safety Report 7505545-3 (Version None)
Quarter: 2011Q2

REPORT INFORMATION
  Report Type: 
  Country: None (occurrence: None)
  Receive Date: 20110526
  Receipt Date: 20100915
  Transmission Date: 20111010
  Serious: No
  Sender: FDA-Public Use
  Company Number: US-MYLANLABS-2010S1017106

PATIENT
  Age: 60 Year
  Sex: Female

DRUGS (1)
  1. FEXOFENADINE HYDROCHLORIDE [Suspect]
     Indication: SEASONAL ALLERGY
     Route: 048
     Dates: start: 20100701

REACTIONS (1)
  - DYSPEPSIA [None]
